FAERS Safety Report 22343318 (Version 1)
Quarter: 2023Q2

REPORT INFORMATION
  Report Type: Spontaneous
  Country: RU (occurrence: RU)
  Receive Date: 20230519
  Receipt Date: 20230519
  Transmission Date: 20230721
  Serious: Yes (Other)
  Sender: FDA-Public Use
  Company Number: RU-BAYER-2023A068121

PATIENT
  Age: 8 Year
  Sex: Male

DRUGS (1)
  1. BETAMETHASONE DIPROPIONATE\CLOTRIMAZOLE\GENTAMICIN SULFATE [Suspect]
     Active Substance: BETAMETHASONE DIPROPIONATE\CLOTRIMAZOLE\GENTAMICIN SULFATE
     Indication: Fungal foot infection
     Dosage: UNK
     Dates: start: 202305, end: 20230511

REACTIONS (2)
  - Toxic skin eruption [Unknown]
  - Rash [Unknown]
